FAERS Safety Report 23787216 (Version 1)
Quarter: 2024Q2

REPORT INFORMATION
  Report Type: Spontaneous
  Country: US (occurrence: US)
  Receive Date: 20240426
  Receipt Date: 20240426
  Transmission Date: 20240716
  Serious: No
  Sender: FDA-Public Use
  Company Number: US-APOTEX-2024AP001874

PATIENT
  Age: 27 Year
  Sex: Female

DRUGS (5)
  1. LETROZOLE [Suspect]
     Active Substance: LETROZOLE
     Indication: Drug therapy
     Dosage: UNK
     Route: 065
     Dates: start: 20170116
  2. LETROZOLE [Suspect]
     Active Substance: LETROZOLE
     Indication: Targeted cancer therapy
  3. PALBOCICLIB [Concomitant]
     Active Substance: PALBOCICLIB
     Indication: Disease progression
     Dosage: UNK
     Route: 065
     Dates: start: 20180415, end: 20181018
  4. PALBOCICLIB [Concomitant]
     Active Substance: PALBOCICLIB
     Indication: Targeted cancer therapy
  5. DOXORUBICIN HYDROCHLORIDE [Concomitant]
     Active Substance: DOXORUBICIN HYDROCHLORIDE
     Indication: Chemotherapy
     Dosage: UNK
     Route: 065
     Dates: start: 20181204, end: 20190115

REACTIONS (1)
  - Drug resistance [Unknown]

NARRATIVE: CASE EVENT DATE: 20181001
